FAERS Safety Report 5796002-3 (Version None)
Quarter: 2008Q3

REPORT INFORMATION
  Report Type: 
  Country: None (occurrence: None)
  Receive Date: 20080701
  Receipt Date: 20080619
  Transmission Date: 20090109
  Serious: Yes (Hospitalization)
  Sender: FDA-Public Use
  Company Number: US-ROCHE-567393

PATIENT
  Sex: Female
  Weight: 54 kg

DRUGS (5)
  1. CAPECITABINE [Suspect]
     Indication: BREAST CANCER
     Route: 048
     Dates: start: 20080210
  2. FASLODEX [Concomitant]
  3. ZOLADEX [Concomitant]
     Dates: start: 20010101
  4. OXYCONTIN [Concomitant]
  5. ANTIDEPRESSANT NOS [Concomitant]

REACTIONS (1)
  - NEOPLASM PROGRESSION [None]
